FAERS Safety Report 4780375-4 (Version None)
Quarter: 2005Q3

REPORT INFORMATION
  Report Type: 
  Country: None (occurrence: None)
  Receive Date: 20050926
  Receipt Date: 20050913
  Transmission Date: 20060218
  Serious: Yes (Hospitalization, Other)
  Sender: FDA-Public Use
  Company Number: 2002057880

PATIENT
  Age: 59 Year
  Sex: Female
  Weight: 83.0083 kg

DRUGS (8)
  1. ATORVASTATIN (ATORVASTATIN) [Suspect]
     Indication: HYPERLIPIDAEMIA
     Dosage: 10 MG (1 IN 1 D), ORAL
     Route: 048
     Dates: start: 20011101
  2. LEVOTHYROXINE SODIUM [Concomitant]
  3. TRAZODONE HCL [Concomitant]
  4. ALTACE [Concomitant]
  5. BISOPROLOL (BISOPROLOL) [Concomitant]
  6. CELEBREX [Concomitant]
  7. OMEPRAZOLE [Concomitant]
  8. ATENOLOL [Concomitant]

REACTIONS (7)
  - CARDIAC FAILURE CONGESTIVE [None]
  - DYSPNOEA [None]
  - PALPITATIONS [None]
  - POSTNASAL DRIP [None]
  - SINUSITIS [None]
  - UPPER RESPIRATORY TRACT INFECTION [None]
  - VENTRICULAR EXTRASYSTOLES [None]
